FAERS Safety Report 7329805-4 (Version None)
Quarter: 2011Q1

REPORT INFORMATION
  Report Type: 
  Country: None (occurrence: None)
  Receive Date: 20110223
  Receipt Date: 20110207
  Transmission Date: 20110831
  Serious: Yes (Hospitalization)
  Sender: FDA-Public Use
  Company Number: DE-004737

PATIENT
  Age: 36 Year
  Sex: Female

DRUGS (2)
  1. BRAVELLE [Suspect]
     Indication: ASSISTED FERTILISATION
  2. HCG (BREVACTID) [Suspect]
     Dosage: (SINGLE DOSE FOR OVULATION INDUCTION)

REACTIONS (6)
  - CEREBRAL VASOCONSTRICTION [None]
  - ISCHAEMIC STROKE [None]
  - VISUAL IMPAIRMENT [None]
  - HEADACHE [None]
  - GAIT DISTURBANCE [None]
  - HEMIANOPIA HOMONYMOUS [None]
